FAERS Safety Report 12230639 (Version 1)
Quarter: 2016Q2

REPORT INFORMATION
  Report Type: Spontaneous
  Country: US (occurrence: US)
  Receive Date: 20160401
  Receipt Date: 20160401
  Transmission Date: 20160815
  Serious: No
  Sender: FDA-Public Use
  Company Number: US-BAYER-2016-051873

PATIENT
  Age: 15 Year
  Sex: Male

DRUGS (2)
  1. MOTRIN [Concomitant]
     Active Substance: IBUPROFEN
  2. MIRALAX [Suspect]
     Active Substance: POLYETHYLENE GLYCOL 3350
     Indication: CONSTIPATION PROPHYLAXIS
     Dosage: 1 DF, QD
     Route: 048
     Dates: start: 200012

REACTIONS (1)
  - Product use issue [None]

NARRATIVE: CASE EVENT DATE: 200012
